FAERS Safety Report 9800670 (Version 1)
Quarter: 2014Q1

REPORT INFORMATION
  Report Type: Spontaneous
  Country: US (occurrence: US)
  Receive Date: 20140107
  Receipt Date: 20140107
  Transmission Date: 20141002
  Serious: No
  Sender: FDA-Public Use
  Company Number: US-009507513-1401USA001122

PATIENT
  Age: 59 Year
  Sex: Male

DRUGS (2)
  1. ZIOPTAN [Suspect]
     Indication: GLAUCOMA
     Dosage: UNK
     Route: 047
     Dates: start: 20131205
  2. ZIOPTAN [Suspect]
     Dosage: UNK
     Route: 047

REACTIONS (2)
  - Tinnitus [Unknown]
  - Drug dose omission [Unknown]
